FAERS Safety Report 10233286 (Version 1)
Quarter: 2014Q2

REPORT INFORMATION
  Report Type: Spontaneous
  Country: US (occurrence: US)
  Receive Date: 20140612
  Receipt Date: 20140612
  Transmission Date: 20141212
  Serious: No
  Sender: FDA-Public Use
  Company Number: US-PFIZER INC-2014160885

PATIENT
  Age: 44 Year
  Sex: Male
  Weight: 83.9 kg

DRUGS (7)
  1. CHANTIX [Suspect]
     Indication: SMOKING CESSATION THERAPY
     Dosage: UNK
     Route: 048
     Dates: start: 201401, end: 2014
  2. CHANTIX [Suspect]
     Dosage: UNK
     Route: 048
     Dates: start: 201403, end: 2014
  3. CHANTIX [Suspect]
     Dosage: UNK
     Route: 048
     Dates: start: 201405, end: 201405
  4. LISINOPRIL [Concomitant]
     Indication: HYPERTENSION
     Dosage: 20 MG, 1X/DAY
  5. BACLOFEN [Concomitant]
     Indication: BACK PAIN
     Dosage: 20 MG, UNK
  6. TRAMADOL [Concomitant]
     Dosage: 100 MG, 3X/DAY
  7. CLONAZEPAM [Concomitant]
     Indication: ANXIETY
     Dosage: 0.5 MG, 3X/DAY

REACTIONS (1)
  - Abnormal dreams [Unknown]
